FAERS Safety Report 11075180 (Version 1)
Quarter: 2015Q2

REPORT INFORMATION
  Report Type: Spontaneous
  Country: US (occurrence: US)
  Receive Date: 20150429
  Receipt Date: 20150429
  Transmission Date: 20150821
  Serious: Yes (Hospitalization, Other)
  Sender: FDA-Public Use
  Company Number: US-BEH-2015050537

PATIENT
  Sex: Female

DRUGS (1)
  1. HIZENTRA [Suspect]
     Active Substance: HUMAN IMMUNOGLOBULIN G
     Indication: PRODUCT USED FOR UNKNOWN INDICATION

REACTIONS (13)
  - Cholelithiasis [Unknown]
  - Nasopharyngitis [Unknown]
  - Hepatomegaly [Unknown]
  - Surgery [Unknown]
  - Pneumonia [Unknown]
  - Escherichia infection [Unknown]
  - Cough [Unknown]
  - Nephrolithiasis [Unknown]
  - Respiratory syncytial virus infection [Unknown]
  - Pyrexia [Unknown]
  - Drug ineffective [Unknown]
  - Pancreatitis [Unknown]
  - Ovarian mass [Unknown]
